FAERS Safety Report 15231502 (Version 1)
Quarter: 2018Q3

REPORT INFORMATION
  Report Type: Spontaneous
  Country: US (occurrence: US)
  Receive Date: 20180708
  Receipt Date: 20180708
  Transmission Date: 20181010
  Serious: No
  Sender: FDA-Public Use
  Company Number: None

PATIENT
  Age: 41 Year
  Sex: Female
  Weight: 54 kg

DRUGS (2)
  1. FIASP [Suspect]
     Active Substance: INSULIN ASPART
     Indication: TYPE 1 DIABETES MELLITUS
     Route: 058
  2. TRESIBA [Suspect]
     Active Substance: INSULIN DEGLUDEC

REACTIONS (2)
  - Product appearance confusion [None]
  - Extra dose administered [None]

NARRATIVE: CASE EVENT DATE: 20180708
